FAERS Safety Report 10078736 (Version 2)
Quarter: 2016Q1

REPORT INFORMATION
  Report Type: Spontaneous
  Country: JP (occurrence: JP)
  Receive Date: 20140415
  Receipt Date: 20160121
  Transmission Date: 20160525
  Serious: Yes (Other)
  Sender: FDA-Public Use
  Company Number: JP-ASTRAZENECA-2014SE25057

PATIENT
  Sex: Male

DRUGS (2)
  1. BOSMIN [Concomitant]
     Active Substance: EPINEPHRINE
     Dosage: DOSE UNKNOWN
     Route: 065
  2. XYLOCAINE [Suspect]
     Active Substance: LIDOCAINE HYDROCHLORIDE
     Indication: LOCAL ANAESTHESIA
     Dosage: DOSE UNKNOWN
     Route: 045

REACTIONS (3)
  - Visual field defect [Unknown]
  - Cerebral haemorrhage [Unknown]
  - Blood pressure increased [Unknown]
